FAERS Safety Report 7222602-X (Version None)
Quarter: 2011Q1

REPORT INFORMATION
  Report Type: 
  Country: None (occurrence: None)
  Receive Date: 20110106
  Receipt Date: 20110106
  Transmission Date: 20110831
  Serious: Yes (Life-Threatening, Hospitalization, Other)
  Sender: FDA-Public Use
  Company Number: None

PATIENT
  Age: 80 Year
  Sex: Male
  Weight: 78.0187 kg

DRUGS (4)
  1. RISPERIDONE [Suspect]
     Indication: MANIA
     Dosage: 1 EVERY 6 HOURS OR PRN GIVEN ONLY 2 PILLS PO
     Route: 048
     Dates: start: 20101229, end: 20101229
  2. RISPERIDONE [Suspect]
     Indication: DELIRIUM
     Dosage: 1 EVERY 6 HOURS OR PRN GIVEN ONLY 2 PILLS PO
     Route: 048
     Dates: start: 20101229, end: 20101229
  3. RISPERIDONE [Suspect]
     Indication: MANIA
     Dosage: 1 EVERY 6 HOURS OR PRN GIVEN ONLY 2 PILLS PO
     Route: 048
     Dates: start: 20101228, end: 20101228
  4. RISPERIDONE [Suspect]
     Indication: DELIRIUM
     Dosage: 1 EVERY 6 HOURS OR PRN GIVEN ONLY 2 PILLS PO
     Route: 048
     Dates: start: 20101228, end: 20101228

REACTIONS (7)
  - RENAL FAILURE [None]
  - UNRESPONSIVE TO STIMULI [None]
  - DELIRIUM [None]
  - ABASIA [None]
  - DIALYSIS [None]
  - VISION BLURRED [None]
  - DYSPHAGIA [None]
